FAERS Safety Report 5719168-X (Version None)
Quarter: 2008Q2

REPORT INFORMATION
  Report Type: 
  Country: None (occurrence: None)
  Receive Date: 20080428
  Receipt Date: 20080422
  Transmission Date: 20081010
  Serious: Yes (Hospitalization, Other)
  Sender: FDA-Public Use
  Company Number: US-BAYER-200813884NA

PATIENT
  Age: 30 Year
  Sex: Female
  Weight: 90 kg

DRUGS (3)
  1. MIRENA [Suspect]
     Indication: CONTRACEPTION
     Route: 015
     Dates: start: 20071210, end: 20071221
  2. DEPO-PROVERA [Concomitant]
     Dates: start: 20070611
  3. MEDROXYPROGESTERONE [Concomitant]
     Route: 030
     Dates: start: 20070914, end: 20071201

REACTIONS (1)
  - UTERINE RUPTURE [None]
